FAERS Safety Report 15954156 (Version 3)
Quarter: 2019Q1

REPORT INFORMATION
  Report Type: Report from Study
  Country: PT (occurrence: PT)
  Receive Date: 20190213
  Receipt Date: 20190228
  Transmission Date: 20190417
  Serious: Yes (Death, Hospitalization, Other)
  Sender: FDA-Public Use
  Company Number: PT-BIOGEN-2019BI00695461

PATIENT
  Age: 67 Year
  Sex: Female

DRUGS (1)
  1. AVONEX [Suspect]
     Active Substance: INTERFERON BETA-1A
     Indication: RELAPSING-REMITTING MULTIPLE SCLEROSIS
     Route: 030
     Dates: start: 2009

REACTIONS (10)
  - Sneezing [Unknown]
  - Lumbar vertebral fracture [Unknown]
  - Renal failure [Unknown]
  - Respiratory disorder [Fatal]
  - Osteoporosis [Unknown]
  - Plasma cell myeloma [Fatal]
  - Chest pain [Fatal]
  - Cough [Unknown]
  - Pain [Unknown]
  - Pyrexia [Fatal]

NARRATIVE: CASE EVENT DATE: 2016
